FAERS Safety Report 15830885 (Version 1)
Quarter: 2019Q1

REPORT INFORMATION
  Report Type: Report from Study
  Country: CA (occurrence: CA)
  Receive Date: 20190116
  Receipt Date: 20190116
  Transmission Date: 20190417
  Serious: Yes (Other)
  Sender: FDA-Public Use
  Company Number: PHHY2019CA003207

PATIENT
  Sex: Male

DRUGS (1)
  1. DEFEROXAMINE [Suspect]
     Active Substance: DEFEROXAMINE\DEFEROXAMINE MESYLATE
     Indication: IRON OVERLOAD
     Route: 042

REACTIONS (4)
  - Peripheral venous disease [Unknown]
  - Neutropenia [Not Recovered/Not Resolved]
  - Cellulitis [Unknown]
  - Febrile neutropenia [Unknown]
